FAERS Safety Report 4579171-2 (Version None)
Quarter: 2005Q1

REPORT INFORMATION
  Report Type: 
  Country: None (occurrence: None)
  Receive Date: 20050208
  Receipt Date: 20050208
  Transmission Date: 20050727
  Serious: Yes (Life-Threatening, Hospitalization, Disabling)
  Sender: FDA-Public Use
  Company Number: None

PATIENT
  Age: 57 Year
  Sex: Female
  Weight: 53.0709 kg

DRUGS (2)
  1. CELEBREX [Suspect]
     Indication: PAIN
     Dosage: TWO CAPSULES DAILY ORAL
     Route: 048
     Dates: start: 20001210, end: 20040106
  2. VIOXX [Suspect]
     Indication: PAIN
     Dosage: 1 CAPSULE AS NEEDED ORAL
     Route: 048
     Dates: start: 20000605, end: 20040106

REACTIONS (3)
  - CARDIO-RESPIRATORY ARREST [None]
  - CIRCULATORY COLLAPSE [None]
  - COMA [None]
